FAERS Safety Report 11922978 (Version 1)
Quarter: 2016Q1

REPORT INFORMATION
  Report Type: Report from Study
  Country: BR (occurrence: BR)
  Receive Date: 20160116
  Receipt Date: 20160116
  Transmission Date: 20160526
  Serious: Yes (Death)
  Sender: FDA-Public Use
  Company Number: PHHY2016BR004747

PATIENT
  Sex: Male

DRUGS (1)
  1. EXJADE [Suspect]
     Active Substance: DEFERASIROX
     Indication: IRON OVERLOAD
     Dosage: UNK, QD
     Route: 048

REACTIONS (1)
  - Procedural complication [Fatal]

NARRATIVE: CASE EVENT DATE: 20151227
